FAERS Safety Report 4458298-X (Version None)
Quarter: 2004Q3

REPORT INFORMATION
  Report Type: 
  Country: None (occurrence: None)
  Receive Date: 20040924
  Receipt Date: 20040827
  Transmission Date: 20050211
  Serious: Yes (Death, Hospitalization)
  Sender: FDA-Public Use
  Company Number: PHEH2004US09338

PATIENT
  Age: 42 Year
  Sex: Female

DRUGS (2)
  1. LOPRESSOR [Suspect]
     Dosage: UNK/UNK
  2. INSULIN [Suspect]

REACTIONS (7)
  - BLOOD GLUCOSE DECREASED [None]
  - BRAIN DAMAGE [None]
  - CARDIOVERSION [None]
  - HYPOGLYCAEMIA [None]
  - NAUSEA [None]
  - RESPIRATORY ARREST [None]
  - VOMITING [None]
